FAERS Safety Report 14755393 (Version 6)
Quarter: 2018Q2

REPORT INFORMATION
  Report Type: Spontaneous
  Country: ES (occurrence: ES)
  Receive Date: 20180413
  Receipt Date: 20180621
  Transmission Date: 20180711
  Serious: Yes (Hospitalization, Other)
  Sender: FDA-Public Use
  Company Number: ES-BEH-2018089676

PATIENT
  Age: 49 Year
  Sex: Male

DRUGS (4)
  1. HIZENTRA [Suspect]
     Active Substance: HUMAN IMMUNOGLOBULIN G
     Indication: PRIMARY IMMUNODEFICIENCY SYNDROME
     Dosage: 8 G, QOD
     Route: 058
     Dates: start: 201308, end: 201712
  2. HIZENTRA [Suspect]
     Active Substance: HUMAN IMMUNOGLOBULIN G
     Dosage: UNK
     Route: 058
  3. HIZENTRA [Suspect]
     Active Substance: HUMAN IMMUNOGLOBULIN G
     Dosage: UNK
     Route: 058
     Dates: start: 201308
  4. HIZENTRA [Suspect]
     Active Substance: HUMAN IMMUNOGLOBULIN G
     Indication: IMMUNODEFICIENCY COMMON VARIABLE
     Dosage: 10 G, QOW
     Route: 058
     Dates: start: 201712, end: 20180320

REACTIONS (10)
  - Infusion site cellulitis [Recovered/Resolved]
  - Discomfort [Recovered/Resolved]
  - Tooth abscess [Unknown]
  - Infusion site pruritus [Recovered/Resolved]
  - Infusion site pain [Recovered/Resolved]
  - Infusion site erythema [Recovered/Resolved]
  - Pyrexia [Recovered/Resolved]
  - Infusion site oedema [Recovered/Resolved]
  - Infusion site abscess [Recovered/Resolved]
  - Infusion site induration [Recovered/Resolved]

NARRATIVE: CASE EVENT DATE: 20180320
